FAERS Safety Report 12786665 (Version 1)
Quarter: 2016Q3

REPORT INFORMATION
  Report Type: Spontaneous
  Country: US (occurrence: US)
  Receive Date: 20160927
  Receipt Date: 20160927
  Transmission Date: 20161109
  Serious: Yes (Death)
  Sender: FDA-Public Use
  Company Number: None

PATIENT
  Age: 91 Year
  Sex: Female

DRUGS (10)
  1. FORTEO [Suspect]
     Active Substance: TERIPARATIDE
     Indication: OSTEOPOROSIS
     Route: 058
     Dates: start: 201509, end: 20160924
  2. MULTIPLE VIT [Concomitant]
  3. REMERON [Concomitant]
     Active Substance: MIRTAZAPINE
  4. FISH OIL [Concomitant]
     Active Substance: FISH OIL
  5. PRAVASTATIN. [Concomitant]
     Active Substance: PRAVASTATIN
  6. DULCOLAX NOS [Concomitant]
     Active Substance: BISACODYL OR DOCUSATE SODIUM
  7. IRON [Concomitant]
     Active Substance: IRON
  8. LEVOTHYROXIN [Concomitant]
     Active Substance: LEVOTHYROXINE
  9. COENZYME [Concomitant]
     Active Substance: UBIDECARENONE
  10. OMEPRAZOLE. [Concomitant]
     Active Substance: OMEPRAZOLE

REACTIONS (1)
  - Death [None]

NARRATIVE: CASE EVENT DATE: 20160924
